FAERS Safety Report 5942826-9 (Version None)
Quarter: 2008Q4

REPORT INFORMATION
  Report Type: 
  Country: None (occurrence: None)
  Receive Date: 20081106
  Receipt Date: 20081103
  Transmission Date: 20090506
  Serious: Yes (Hospitalization)
  Sender: FDA-Public Use
  Company Number: DE-WYE-G02498308

PATIENT

DRUGS (4)
  1. VENLAFAXINE HCL [Suspect]
     Dosage: UNKNOWN AMOUNT
     Route: 048
     Dates: start: 20081102, end: 20081102
  2. LYRICA [Suspect]
     Dosage: UNKNOWN AMOUNT
     Route: 048
     Dates: start: 20081102, end: 20081102
  3. SOLIAN [Suspect]
     Dosage: UNKNOWN AMOUNT
     Route: 048
     Dates: start: 20081102, end: 20081102
  4. HEROIN [Suspect]
     Dosage: UNKNOWN AMOUNT
     Dates: start: 20081102, end: 20081102

REACTIONS (4)
  - DRUG ABUSE [None]
  - RENAL FAILURE [None]
  - RHABDOMYOLYSIS [None]
  - SOMNOLENCE [None]
